FAERS Safety Report 17213734 (Version 1)
Quarter: 2019Q4

REPORT INFORMATION
  Report Type: Spontaneous
  Country: JP (occurrence: JP)
  Receive Date: 20191230
  Receipt Date: 20191230
  Transmission Date: 20200122
  Serious: Yes (Other)
  Sender: FDA-Public Use
  Company Number: JP-009507513-1912JPN003967J

PATIENT
  Sex: Male

DRUGS (2)
  1. ZETIA [Suspect]
     Active Substance: EZETIMIBE
     Dosage: 10 MILLIGRAM, QD
     Route: 048
  2. ROSUVASTATINE [Suspect]
     Active Substance: ROSUVASTATIN
     Dosage: 2.5 MILLIGRAM
     Route: 065

REACTIONS (3)
  - Cardiac valve disease [Unknown]
  - Dehydration [Unknown]
  - Renal impairment [Unknown]
